FAERS Safety Report 19511555 (Version 3)
Quarter: 2021Q4

REPORT INFORMATION
  Report Type: Report from Study
  Country: DE (occurrence: DE)
  Receive Date: 20210709
  Receipt Date: 20211216
  Transmission Date: 20220303
  Serious: Yes (Death, Life-Threatening, Hospitalization)
  Sender: FDA-Public Use
  Company Number: DE-JNJFOC-20210530604

PATIENT
  Age: 56 Year
  Sex: Female

DRUGS (4)
  1. GUSELKUMAB [Suspect]
     Active Substance: GUSELKUMAB
     Indication: Psoriasis
     Route: 065
     Dates: start: 20200811, end: 20210224
  2. GUSELKUMAB [Suspect]
     Active Substance: GUSELKUMAB
  3. AMPICILLIN SODIUM\SULBACTAM SODIUM [Concomitant]
     Active Substance: AMPICILLIN SODIUM\SULBACTAM SODIUM
     Indication: Urinary tract infection
     Route: 065
     Dates: start: 20210510
  4. THYROXINE [Concomitant]
     Active Substance: LEVOTHYROXINE
     Indication: Hypothyroidism
     Dosage: LAST INCREASE ON 21-MAY-2021
     Route: 065

REACTIONS (4)
  - Myocarditis [Fatal]
  - Myositis [Recovering/Resolving]
  - Autoimmune disorder [Fatal]
  - Muscular weakness [Fatal]

NARRATIVE: CASE EVENT DATE: 20210303
